FAERS Safety Report 7405073-X (Version None)
Quarter: 2011Q1

REPORT INFORMATION
  Report Type: 
  Country: None (occurrence: None)
  Receive Date: 20110301
  Receipt Date: 20100803
  Transmission Date: 20110831
  Serious: Yes (Other)
  Sender: FDA-Public Use
  Company Number: RB-13850-2010

PATIENT
  Sex: Female

DRUGS (3)
  1. ZOFRAN [Concomitant]
  2. SUBUTEX [Suspect]
     Indication: DRUG DEPENDENCE
     Dosage: (DOSE VARIES FROM 6-8 MG TRANSPLACENTAL), (2 MG QD TRANSPLACENTAL)
     Route: 064
     Dates: start: 20091001
  3. SUBUTEX [Suspect]
     Indication: DRUG DEPENDENCE
     Dosage: (DOSE VARIES FROM 6-8 MG TRANSPLACENTAL), (2 MG QD TRANSPLACENTAL)
     Route: 064
     Dates: end: 20100724

REACTIONS (2)
  - DRUG EXPOSURE DURING PREGNANCY [None]
  - DRUG WITHDRAWAL SYNDROME NEONATAL [None]
